FAERS Safety Report 7576615 (Version 5)
Quarter: 2020Q3

REPORT INFORMATION
  Report Type: Report from Study
  Country: CA (occurrence: CA)
  Receive Date: 20100908
  Receipt Date: 20110203
  Transmission Date: 20201105
  Serious: Yes (Life-Threatening, Hospitalization, Other)
  Sender: FDA-Public Use
  Company Number: CA-JNJFOC-20100807725

PATIENT
  Age: 58 Year
  Sex: Male
  Weight: 138.6 kg

DRUGS (18)
  1. ASPIRIN. [Concomitant]
     Active Substance: ASPIRIN
     Indication: CARDIOVASCULAR EVENT PROPHYLAXIS
     Dosage: DAILY
     Route: 048
  2. ACETAMINOPHEN\TRAMADOL HYDROCHLORIDE [Concomitant]
     Active Substance: ACETAMINOPHEN\TRAMADOL HYDROCHLORIDE
     Indication: DIABETIC NEUROPATHY
     Route: 048
  3. SINGULAIR [Concomitant]
     Active Substance: MONTELUKAST SODIUM
     Indication: ASTHMA
     Dosage: 1 PER DAY
     Route: 048
  4. TAPENTADOL [Suspect]
     Active Substance: TAPENTADOL
     Route: 048
  5. NORVASC [Concomitant]
     Active Substance: AMLODIPINE BESYLATE
     Indication: HYPERTENSION
     Dosage: 1 PER DAY
     Route: 048
  6. TAPENTADOL [Suspect]
     Active Substance: TAPENTADOL
     Route: 048
  7. AMPICILLIN [Concomitant]
     Active Substance: AMPICILLIN
     Indication: BRONCHITIS
     Dosage: 3 PER DAY
     Route: 048
  8. TAPENTADOL [Suspect]
     Active Substance: TAPENTADOL
     Indication: DIABETIC NEUROPATHY
     Route: 048
  9. FERROUS GLUCONATE [Concomitant]
     Active Substance: FERROUS GLUCONATE
     Indication: HAEMOGLOBIN DECREASED
     Dosage: 1 DAILY
     Route: 048
  10. TAPENTADOL [Suspect]
     Active Substance: TAPENTADOL
     Indication: DIABETIC NEUROPATHY
     Route: 048
  11. FERROUS GLUCONATE [Concomitant]
     Active Substance: FERROUS GLUCONATE
     Indication: BLOOD IRON DECREASED
     Dosage: 1 DAILY
     Route: 048
  12. COZAAR [Concomitant]
     Active Substance: LOSARTAN POTASSIUM
     Indication: HYPERTENSION
     Dosage: 1 PER DAY
     Route: 048
  13. LORAZEPAM. [Concomitant]
     Active Substance: LORAZEPAM
     Indication: SLEEP APNOEA SYNDROME
     Dosage: 1 AT NIGHT
     Route: 048
  14. SPIRONOLACTONE. [Concomitant]
     Active Substance: SPIRONOLACTONE
     Indication: HYPERTENSION
     Dosage: 1 PER DAY
     Route: 048
  15. EPIPEN [Concomitant]
     Active Substance: EPINEPHRINE
     Indication: ANAPHYLACTIC REACTION
     Route: 030
  16. PERCOCET [Concomitant]
     Active Substance: ACETAMINOPHEN\OXYCODONE HYDROCHLORIDE
     Indication: DIABETIC NEUROPATHY
     Dosage: 4 IN 1 DAY
     Route: 048
  17. FUROSEMIDE. [Concomitant]
     Active Substance: FUROSEMIDE
     Indication: CARDIAC FAILURE CONGESTIVE
     Dosage: 2 PER DAY
     Route: 048
  18. AMPICILLIN [Concomitant]
     Active Substance: AMPICILLIN
     Dosage: 3 PER DAY
     Route: 048

REACTIONS (3)
  - Suicidal ideation [Recovered/Resolved]
  - Anxiety [Recovered/Resolved]
  - Hypoglycaemia [Recovered/Resolved]

NARRATIVE: CASE EVENT DATE: 20100818
